FAERS Safety Report 10607834 (Version 1)
Quarter: 2014Q4

REPORT INFORMATION
  Report Type: Spontaneous
  Country: US (occurrence: US)
  Receive Date: 20141125
  Receipt Date: 20141125
  Transmission Date: 20150529
  Serious: No
  Sender: FDA-Public Use
  Company Number: US-BAYER-2014-174609

PATIENT
  Sex: Female

DRUGS (1)
  1. ALEVE PM [Suspect]
     Active Substance: DIPHENHYDRAMINE HYDROCHLORIDE\NAPROXEN SODIUM
     Indication: ANALGESIC THERAPY
     Dosage: 1 DF, QD
     Route: 048

REACTIONS (3)
  - Fatigue [Recovered/Resolved]
  - Abdominal pain upper [Recovered/Resolved]
  - Somnolence [Recovered/Resolved]
